FAERS Safety Report 12818752 (Version 1)
Quarter: 2016Q4

REPORT INFORMATION
  Report Type: Spontaneous
  Country: US (occurrence: US)
  Receive Date: 20161006
  Receipt Date: 20161006
  Transmission Date: 20170207
  Serious: Yes (Hospitalization)
  Sender: FDA-Public Use
  Company Number: None

PATIENT
  Age: 63 Year
  Sex: Female
  Weight: 50.4 kg

DRUGS (2)
  1. PROPOFOL. [Suspect]
     Active Substance: PROPOFOL
     Indication: SEDATION
     Dosage: IV (NOT OTHERWISE SPECIFIED)
     Route: 042
     Dates: start: 20160922, end: 20160922
  2. PROPOFOL. [Suspect]
     Active Substance: PROPOFOL
     Indication: ENDOSCOPY
     Dosage: IV (NOT OTHERWISE SPECIFIED)
     Route: 042
     Dates: start: 20160922, end: 20160922

REACTIONS (6)
  - Abdominal pain upper [None]
  - Ventricular extrasystoles [None]
  - Headache [None]
  - Feeling abnormal [None]
  - Blood pressure increased [None]
  - Anxiety [None]

NARRATIVE: CASE EVENT DATE: 20160925
